FAERS Safety Report 9458985 (Version 1)
Quarter: 2013Q3

REPORT INFORMATION
  Report Type: Spontaneous
  Country: US (occurrence: US)
  Receive Date: 20130814
  Receipt Date: 20130814
  Transmission Date: 20140515
  Serious: No
  Sender: FDA-Public Use
  Company Number: US-009507513-1308USA004959

PATIENT
  Age: 18 Year
  Sex: Female
  Weight: 64.85 kg

DRUGS (1)
  1. IMPLANON [Suspect]
     Indication: CONTRACEPTION
     Dosage: 1 ROD UP TO 3 YEARS
     Dates: start: 20130419

REACTIONS (2)
  - Hypomenorrhoea [Unknown]
  - Mood altered [Unknown]
